FAERS Safety Report 11149807 (Version 2)
Quarter: 2015Q3

REPORT INFORMATION
  Report Type: Spontaneous
  Country: TR (occurrence: TR)
  Receive Date: 20150529
  Receipt Date: 20150707
  Transmission Date: 20151125
  Serious: Yes (Hospitalization)
  Sender: FDA-Public Use
  Company Number: PHHY2015TR064265

PATIENT
  Age: 79 Year
  Sex: Male
  Weight: 65 kg

DRUGS (4)
  1. DELTACORTRIL [Concomitant]
     Active Substance: PREDNISOLONE
     Indication: PRODUCT USED FOR UNKNOWN INDICATION
     Dosage: 5 MG, UNK
     Route: 065
  2. ACLASTA [Suspect]
     Active Substance: ZOLEDRONIC ACID
     Indication: OSTEOPOROSIS
     Dosage: UNK
     Route: 042
     Dates: start: 20150520
  3. PLAVIX [Concomitant]
     Active Substance: CLOPIDOGREL BISULFATE
     Indication: PRODUCT USED FOR UNKNOWN INDICATION
     Dosage: UNK
     Route: 065
  4. SALAZOPYRIN [Concomitant]
     Active Substance: SULFASALAZINE
     Indication: PRODUCT USED FOR UNKNOWN INDICATION
     Dosage: UNK
     Route: 065

REACTIONS (20)
  - Hypersensitivity [Recovering/Resolving]
  - Syncope [Recovering/Resolving]
  - White blood cell count increased [Recovered/Resolved]
  - Platelet distribution width increased [Not Recovered/Not Resolved]
  - Muscle contractions involuntary [Recovering/Resolving]
  - Tongue spasm [Unknown]
  - Dyspnoea [Unknown]
  - Hypotension [Unknown]
  - Lymphocyte percentage decreased [Not Recovered/Not Resolved]
  - Lymphocyte count decreased [Recovered/Resolved]
  - Tongue oedema [Unknown]
  - Hyponatraemia [Unknown]
  - Red cell distribution width increased [Not Recovered/Not Resolved]
  - Asthma [Unknown]
  - Neutrophil count increased [Recovered/Resolved]
  - C-reactive protein increased [Not Recovered/Not Resolved]
  - Wheezing [Unknown]
  - Swollen tongue [Unknown]
  - Neutrophil percentage increased [Recovered/Resolved]
  - Mean platelet volume decreased [Recovered/Resolved]

NARRATIVE: CASE EVENT DATE: 20150522
